FAERS Safety Report 6630930-1 (Version None)
Quarter: 2010Q1

REPORT INFORMATION
  Report Type: 
  Country: None (occurrence: None)
  Receive Date: 20100311
  Receipt Date: 20100305
  Transmission Date: 20100710
  Serious: Yes (Hospitalization)
  Sender: FDA-Public Use
  Company Number: IT-AMGEN-KDC394794

PATIENT
  Sex: Female

DRUGS (2)
  1. ROMIPLOSTIM [Suspect]
     Indication: THROMBOCYTOPENIA
     Route: 058
     Dates: start: 20091217
  2. ATENOLOL [Concomitant]
     Dates: start: 20090801

REACTIONS (1)
  - GENERALISED OEDEMA [None]
